FAERS Safety Report 18822447 (Version 2)
Quarter: 2022Q1

REPORT INFORMATION
  Report Type: Spontaneous
  Country: CZ (occurrence: CZ)
  Receive Date: 20210202
  Receipt Date: 20220216
  Transmission Date: 20220423
  Serious: Yes (Other)
  Sender: FDA-Public Use
  Company Number: CZ-NOVARTISPH-NVSC2020CZ348893

PATIENT
  Age: 72 Year
  Sex: Male

DRUGS (8)
  1. LEUPROLIDE ACETATE [Suspect]
     Active Substance: LEUPROLIDE ACETATE
     Indication: Prostate cancer metastatic
     Dosage: UNK
     Route: 065
     Dates: start: 201607
  2. LEUPROLIDE ACETATE [Suspect]
     Active Substance: LEUPROLIDE ACETATE
     Indication: Hormone-refractory prostate cancer
  3. BICALUTAMIDE [Suspect]
     Active Substance: BICALUTAMIDE
     Indication: Prostate cancer metastatic
     Dosage: UNK
     Route: 065
     Dates: start: 201607
  4. BICALUTAMIDE [Suspect]
     Active Substance: BICALUTAMIDE
     Indication: Androgen therapy
  5. ZOLEDRONIC ACID [Suspect]
     Active Substance: ZOLEDRONIC ACID
     Indication: Prostate cancer metastatic
     Dosage: UNK
     Route: 065
     Dates: start: 201607, end: 201905
  6. ZOLEDRONIC ACID [Suspect]
     Active Substance: ZOLEDRONIC ACID
     Indication: Supportive care
  7. ZOLEDRONIC ACID [Suspect]
     Active Substance: ZOLEDRONIC ACID
     Indication: Prostate cancer
  8. ENZALUTAMIDE [Concomitant]
     Active Substance: ENZALUTAMIDE
     Indication: Antiandrogen therapy
     Dosage: 160 MG, QD
     Route: 065
     Dates: start: 201711

REACTIONS (4)
  - Hormone-refractory prostate cancer [Unknown]
  - Metastases to bone [Unknown]
  - Tooth disorder [Unknown]
  - Nodule [Unknown]

NARRATIVE: CASE EVENT DATE: 20171101
